FAERS Safety Report 7111171-0 (Version None)
Quarter: 2010Q4

REPORT INFORMATION
  Report Type: 
  Country: None (occurrence: None)
  Receive Date: 20101118
  Receipt Date: 20091130
  Transmission Date: 20110411
  Serious: No
  Sender: FDA-Public Use
  Company Number: US-TEVA-217014USA

PATIENT
  Age: 74 Year
  Sex: Male
  Weight: 90.8 kg

DRUGS (4)
  1. ALBUTEROL SULFATE AUTOHALER [Suspect]
     Indication: ASTHMA
     Route: 055
     Dates: start: 20090930, end: 20091124
  2. LISINOPRIL [Concomitant]
  3. METOPROLOL [Concomitant]
  4. LOVASTATIN [Concomitant]

REACTIONS (2)
  - GASTRIC DILATATION [None]
  - RETCHING [None]
